FAERS Safety Report 11331980 (Version 1)
Quarter: 2015Q3

REPORT INFORMATION
  Report Type: Spontaneous
  Country: US (occurrence: US)
  Receive Date: 20150803
  Receipt Date: 20150803
  Transmission Date: 20151125
  Serious: No
  Sender: FDA-Public Use
  Company Number: US-ELI_LILLY_AND_COMPANY-US200807004957

PATIENT
  Sex: Female

DRUGS (2)
  1. LEVOTHYROXINE. [Concomitant]
     Active Substance: LEVOTHYROXINE
  2. ZYPREXA [Suspect]
     Active Substance: OLANZAPINE
     Dates: start: 200609, end: 20061227

REACTIONS (5)
  - Mania [Recovered/Resolved]
  - Paranoia [Not Recovered/Not Resolved]
  - Agitation [Recovered/Resolved]
  - Drug hypersensitivity [Unknown]
  - Stupor [Recovered/Resolved]

NARRATIVE: CASE EVENT DATE: 2004
